FAERS Safety Report 4730141-0 (Version None)
Quarter: 2005Q3

REPORT INFORMATION
  Report Type: 
  Country: None (occurrence: None)
  Receive Date: 20050728
  Receipt Date: 20050728
  Transmission Date: 20060218
  Serious: Yes (Life-Threatening)
  Sender: FDA-Public Use
  Company Number: None

PATIENT
  Age: 60 Year
  Sex: Male

DRUGS (2)
  1. LISINOPRIL [Suspect]
     Indication: CARDIAC FAILURE CONGESTIVE
     Dosage: 20 MG   Q DAY
  2. LISINOPRIL [Suspect]
     Indication: HYPERTENSION
     Dosage: 20 MG   Q DAY

REACTIONS (2)
  - ANGIONEUROTIC OEDEMA [None]
  - THROAT TIGHTNESS [None]
